FAERS Safety Report 10484125 (Version 2)
Quarter: 2014Q3

REPORT INFORMATION
  Report Type: Spontaneous
  Country: US (occurrence: US)
  Receive Date: 20140930
  Receipt Date: 20140930
  Transmission Date: 20150326
  Serious: No
  Sender: FDA-Public Use
  Company Number: US-ELI_LILLY_AND_COMPANY-US201407006585

PATIENT
  Sex: Female

DRUGS (2)
  1. DULOXETINE HYDROCHLORIDE. [Suspect]
     Active Substance: DULOXETINE HYDROCHLORIDE
     Indication: PRODUCT USED FOR UNKNOWN INDICATION
     Dosage: UNK UNK, UNKNOWN
     Route: 048
  2. DULOXETINE [Suspect]
     Active Substance: DULOXETINE
     Indication: PRODUCT USED FOR UNKNOWN INDICATION
     Dosage: UNK, UNKNOWN
     Route: 065
     Dates: start: 20140713, end: 20140716

REACTIONS (5)
  - Crying [Unknown]
  - Headache [Unknown]
  - Chest pain [Unknown]
  - Fatigue [Unknown]
  - Anxiety [Unknown]
